FAERS Safety Report 14922606 (Version 1)
Quarter: 2018Q2

REPORT INFORMATION
  Report Type: Spontaneous
  Country: US (occurrence: US)
  Receive Date: 20180522
  Receipt Date: 20180522
  Transmission Date: 20180711
  Serious: Yes (Other)
  Sender: FDA-Public Use
  Company Number: US-IPSEN BIOPHARMACEUTICALS, INC.-2018-06651

PATIENT
  Age: 78 Year
  Sex: Male

DRUGS (10)
  1. XERMELO [Suspect]
     Active Substance: TELOTRISTAT ETHYL
     Route: 048
     Dates: start: 20180316
  2. ALEVE [Concomitant]
     Active Substance: NAPROXEN SODIUM
  3. XERMELO [Suspect]
     Active Substance: TELOTRISTAT ETHYL
     Indication: CARCINOID TUMOUR
     Route: 048
     Dates: start: 20170810, end: 2017
  4. XERMELO [Suspect]
     Active Substance: TELOTRISTAT ETHYL
     Route: 048
     Dates: start: 2017
  5. LANREOTIDE AUTOGEL [Suspect]
     Active Substance: LANREOTIDE
     Indication: PRODUCT USED FOR UNKNOWN INDICATION
     Dosage: NOT REPORTED
     Route: 058
     Dates: start: 201402
  6. XERMELO [Suspect]
     Active Substance: TELOTRISTAT ETHYL
     Route: 048
  7. AFINITOR [Concomitant]
     Active Substance: EVEROLIMUS
     Dates: start: 201606
  8. TINCTURE OF OPIUM [Concomitant]
     Active Substance: OPIUM
  9. CREON [Concomitant]
     Active Substance: PANCRELIPASE AMYLASE\PANCRELIPASE LIPASE\PANCRELIPASE PROTEASE
  10. IMODIUM [Concomitant]
     Active Substance: LOPERAMIDE HYDROCHLORIDE

REACTIONS (1)
  - Malignant ascites [Unknown]

NARRATIVE: CASE EVENT DATE: 201803
